FAERS Safety Report 24462285 (Version 1)
Quarter: 2024Q4

REPORT INFORMATION
  Report Type: Spontaneous
  Country: US (occurrence: None)
  Receive Date: 20241017
  Receipt Date: 20241017
  Transmission Date: 20250115
  Serious: No
  Sender: Public
  Company Number: None

PATIENT
  Age: 24 Year
  Sex: Female
  Weight: 72.57 kg

DRUGS (5)
  1. LATUDA [Suspect]
     Active Substance: LURASIDONE HYDROCHLORIDE
     Indication: Bipolar disorder
     Dates: start: 20201112, end: 20210402
  2. MIRTAZAPINE [Concomitant]
     Active Substance: MIRTAZAPINE
  3. LITHIUM CARBONATE [Concomitant]
  4. OXCARBAZEPINE [Concomitant]
     Active Substance: OXCARBAZEPINE
  5. LAMOTRIGINE [Concomitant]
     Active Substance: LAMOTRIGINE

REACTIONS (4)
  - Gestational diabetes [None]
  - Maternal exposure during pregnancy [None]
  - Amniotic cavity infection [None]
  - Caesarean section [None]

NARRATIVE: CASE EVENT DATE: 20210429
